FAERS Safety Report 16974480 (Version 1)
Quarter: 2019Q4

REPORT INFORMATION
  Report Type: Spontaneous
  Country: US (occurrence: US)
  Receive Date: 20191030
  Receipt Date: 20191030
  Transmission Date: 20200122
  Serious: Yes (Other)
  Sender: FDA-Public Use
  Company Number: US-GILEAD-2019-0434738

PATIENT
  Sex: Male

DRUGS (1)
  1. TRUVADA [Suspect]
     Active Substance: EMTRICITABINE\TENOFOVIR DISOPROXIL FUMARATE
     Indication: HIV INFECTION
     Dosage: UNK
     Route: 048
     Dates: start: 2004, end: 2018

REACTIONS (17)
  - Sciatica [Unknown]
  - Spinal stenosis [Unknown]
  - Spinal osteoarthritis [Unknown]
  - Vitamin D deficiency [Unknown]
  - Pain [Not Recovered/Not Resolved]
  - Economic problem [Not Recovered/Not Resolved]
  - Osteoporosis [Unknown]
  - Anxiety [Not Recovered/Not Resolved]
  - Asthenia [Not Recovered/Not Resolved]
  - Anhedonia [Not Recovered/Not Resolved]
  - Osteopenia [Unknown]
  - Arthritis [Unknown]
  - Lumbar spinal stenosis [Unknown]
  - Lumbar radiculopathy [Unknown]
  - Intervertebral disc space narrowing [Unknown]
  - Spondylolisthesis [Unknown]
  - Emotional distress [Not Recovered/Not Resolved]
